FAERS Safety Report 8977888 (Version 1)
Quarter: 2012Q4

REPORT INFORMATION
  Report Type: 
  Country: US (occurrence: US)
  Receive Date: 20121219
  Receipt Date: 20121219
  Transmission Date: 20130627
  Serious: No
  Sender: FDA-Public Use
  Company Number: US-ASTRAZENECA-2012SE91954

PATIENT
  Age: 928 Month
  Sex: Female
  Weight: 83.9 kg

DRUGS (3)
  1. METOPROLOL SUCCINATE [Suspect]
     Route: 048
     Dates: start: 201203
  2. CRESTOR [Suspect]
     Indication: BLOOD CHOLESTEROL INCREASED
     Route: 048
     Dates: start: 201211, end: 20121204
  3. NORVASC [Concomitant]

REACTIONS (3)
  - Decreased activity [Unknown]
  - Pruritus [Unknown]
  - Urticaria [Unknown]
